FAERS Safety Report 14840197 (Version 1)
Quarter: 2018Q2

REPORT INFORMATION
  Report Type: Report from Study
  Country: GB (occurrence: GB)
  Receive Date: 20180503
  Receipt Date: 20180503
  Transmission Date: 20180711
  Serious: Yes (Death, Hospitalization)
  Sender: FDA-Public Use
  Company Number: GB-TEVA-2018-GB-886245

PATIENT
  Age: 78 Year
  Sex: Female
  Weight: 92 kg

DRUGS (1)
  1. DOXORUBICIN SUSPENSION FOR INJECTION [Suspect]
     Active Substance: DOXORUBICIN
     Indication: OVARIAN CANCER
     Dosage: CYCLE 1 DAY 1 EVERY 28 DAYS
     Route: 042
     Dates: start: 20160712

REACTIONS (1)
  - Sepsis [Fatal]
